FAERS Safety Report 9299130 (Version 3)
Quarter: 2014Q2

REPORT INFORMATION
  Report Type: Spontaneous
  Country: US (occurrence: US)
  Receive Date: 20130520
  Receipt Date: 20140414
  Transmission Date: 20141212
  Serious: Yes (Hospitalization)
  Sender: FDA-Public Use
  Company Number: US-009507513-1305USA010621

PATIENT
  Sex: Male
  Weight: 90.7 kg

DRUGS (1)
  1. PROPECIA [Suspect]
     Indication: ALOPECIA
     Dosage: 1 MG, UNK
     Route: 048
     Dates: start: 1998, end: 2000

REACTIONS (21)
  - Appendicectomy [Unknown]
  - Hypogonadism [Unknown]
  - Fatigue [Unknown]
  - Anxiety [Unknown]
  - Hypertension [Not Recovered/Not Resolved]
  - Chest pain [Unknown]
  - Vitamin D deficiency [Unknown]
  - Fluid retention [Unknown]
  - Bacterial infection [Unknown]
  - Acne [Unknown]
  - Magnesium deficiency [Unknown]
  - Diarrhoea [Unknown]
  - Supraventricular tachycardia [Unknown]
  - Muscle spasms [Recovering/Resolving]
  - Tension headache [Recovering/Resolving]
  - Migraine [Unknown]
  - Feeling abnormal [Unknown]
  - Libido decreased [Unknown]
  - Erectile dysfunction [Recovering/Resolving]
  - Gynaecomastia [Unknown]
  - Sexual dysfunction [Recovering/Resolving]
